FAERS Safety Report 6202602-9 (Version None)
Quarter: 2009Q2

REPORT INFORMATION
  Report Type: 
  Country: None (occurrence: None)
  Receive Date: 20090520
  Receipt Date: 20090512
  Transmission Date: 20091009
  Serious: Yes (Hospitalization)
  Sender: FDA-Public Use
  Company Number: 2009SP010181

PATIENT
  Age: 49 Year
  Sex: Female

DRUGS (2)
  1. TEMODAL [Suspect]
     Indication: SKIN CANCER
     Dosage: 200 MG;QD;PO
     Route: 048
  2. AVASTIN [Suspect]
     Indication: SKIN CANCER
     Dosage: 800 MG;QD;IV
     Route: 042
     Dates: start: 20090316, end: 20090414

REACTIONS (3)
  - ANXIETY [None]
  - DYSPNOEA [None]
  - MOOD ALTERED [None]
